FAERS Safety Report 7917413-3 (Version None)
Quarter: 2011Q4

REPORT INFORMATION
  Report Type: 
  Country: None (occurrence: None)
  Receive Date: 20111114
  Receipt Date: 20111031
  Transmission Date: 20120403
  Serious: Yes (Other)
  Sender: FDA-Public Use
  Company Number: TPA2011A05310

PATIENT
  Age: 63 Year
  Sex: Female

DRUGS (10)
  1. ADENURIC (FEBUXOSTAT) [Suspect]
     Indication: GOUT
     Dosage: 80 MG (80 MG, 1 IN 1 D)
     Dates: start: 20101220, end: 20110101
  2. ENALAPRIL MALEATE [Concomitant]
  3. HYDROMORPHONE HCL [Concomitant]
  4. COLCHICNE (COLCHICINE) [Concomitant]
  5. TERBUTALINE SULFATE [Concomitant]
  6. DOXAZOSIN MESYLATE [Concomitant]
  7. BUDESONIDE [Concomitant]
  8. CANDESARTAN CILEXETIL [Concomitant]
  9. FUROSEMIDE [Concomitant]
  10. NABUMETONE [Concomitant]

REACTIONS (13)
  - ASTHENIA [None]
  - NAUSEA [None]
  - MUSCLE SPASMS [None]
  - FATIGUE [None]
  - DIZZINESS [None]
  - DIARRHOEA [None]
  - HYPERHIDROSIS [None]
  - DYSPNOEA [None]
  - PALPITATIONS [None]
  - RENAL IMPAIRMENT [None]
  - PRURITUS [None]
  - MIDDLE INSOMNIA [None]
  - INFLUENZA LIKE ILLNESS [None]
